FAERS Safety Report 21589248 (Version 3)
Quarter: 2023Q1

REPORT INFORMATION
  Report Type: Report from Study
  Country: CH (occurrence: CH)
  Receive Date: 20221114
  Receipt Date: 20230117
  Transmission Date: 20230418
  Serious: Yes (Hospitalization, Other)
  Sender: FDA-Public Use
  Company Number: CH-ABBVIE-4179276

PATIENT
  Sex: Female

DRUGS (5)
  1. CARBIDOPA\LEVODOPA [Suspect]
     Active Substance: CARBIDOPA\LEVODOPA
     Indication: Parkinson^s disease
     Dosage: MD: 5.0 ML, CRD: 2.5 ML/H, ED: 2.0 ML
     Route: 050
     Dates: start: 20210901
  2. CARBIDOPA\LEVODOPA [Suspect]
     Active Substance: CARBIDOPA\LEVODOPA
     Dosage: MD: 5.0 ML, CRD: 2.4 ML/H, ED: 2.0 ML; FREQUENCY TEXT: 16H THERAPY
     Route: 050
     Dates: start: 20220719, end: 202210
  3. CARBIDOPA\LEVODOPA [Suspect]
     Active Substance: CARBIDOPA\LEVODOPA
     Dosage: MD: 5.0 ML, CRD: 2.5 ML/H, ED: 2.0 ML; LAST ADMINISTRATION DOSE:2022 ;FREQUENCY TEXT: 16 H THERAPY
     Route: 050
     Dates: start: 20220208, end: 20220719
  4. CARBIDOPA\LEVODOPA [Suspect]
     Active Substance: CARBIDOPA\LEVODOPA
     Dosage: FREQUENCY TEXT: 24 H THERAPY
     Route: 050
     Dates: start: 202210, end: 20230113
  5. CARBIDOPA\LEVODOPA [Suspect]
     Active Substance: CARBIDOPA\LEVODOPA
     Dosage: MD: 3.0 ML, CRD: 3.3 ML/H, ED: 1.0 ML/H, CRN: 0.7 ML/H
     Route: 050
     Dates: start: 20230113

REACTIONS (12)
  - Abdominal pain [Unknown]
  - Cholecystitis [Unknown]
  - General physical health deterioration [Recovering/Resolving]
  - Sepsis [Unknown]
  - Hospitalisation [Not Recovered/Not Resolved]
  - Infection [Not Recovered/Not Resolved]
  - Asthenia [Not Recovered/Not Resolved]
  - Stoma site erythema [Not Recovered/Not Resolved]
  - Medical device site dryness [Not Recovered/Not Resolved]
  - Mobility decreased [Recovering/Resolving]
  - Petechiae [Not Recovered/Not Resolved]
  - Dyskinesia [Not Recovered/Not Resolved]

NARRATIVE: CASE EVENT DATE: 20220101
